FAERS Safety Report 6102243-8 (Version None)
Quarter: 2009Q1

REPORT INFORMATION
  Report Type: 
  Country: None (occurrence: None)
  Receive Date: 20090304
  Receipt Date: 20090220
  Transmission Date: 20090719
  Serious: Yes (Hospitalization)
  Sender: FDA-Public Use
  Company Number: US-PFIZER INC-2009173000

PATIENT
  Age: 37 Year
  Sex: Male
  Weight: 100.7 kg

DRUGS (3)
  1. BLINDED *PLACEBO [Suspect]
     Indication: RENAL CANCER
     Dosage: UNK
     Route: 048
     Dates: start: 20080908
  2. BLINDED *SORAFENIB [Suspect]
     Indication: RENAL CANCER
     Dosage: UNK
     Route: 048
     Dates: start: 20080908
  3. BLINDED SUNITINIB MALATE [Suspect]
     Indication: RENAL CANCER
     Dosage: UNK
     Route: 048
     Dates: start: 20080908

REACTIONS (1)
  - URINARY TRACT INFECTION [None]
